FAERS Safety Report 6716853 (Version 2)
Quarter: 2013Q3

REPORT INFORMATION
  Report Type: Spontaneous
  Country: US (occurrence: US)
  Receive Date: 20080801
  Receipt Date: 20130802
  Transmission Date: 20140515
  Serious: No
  Sender: FDA-Public Use
  Company Number: US-BRISTOL-MYERS SQUIBB COMPANY-14154272

PATIENT
  Sex: Male

DRUGS (1)
  1. COUMADIN [Suspect]
     Indication: THROMBOSIS
     Route: 048

REACTIONS (2)
  - International normalised ratio abnormal [Recovering/Resolving]
  - Drug ineffective [Unknown]
